FAERS Safety Report 8308628-3 (Version None)
Quarter: 2012Q2

REPORT INFORMATION
  Report Type: 
  Country: None (occurrence: None)
  Receive Date: 20120424
  Receipt Date: 20120417
  Transmission Date: 20120825
  Serious: Yes (Other)
  Sender: FDA-Public Use
  Company Number: DK-BAYER-2012-036976

PATIENT
  Age: 25 Year
  Sex: Female
  Weight: 70 kg

DRUGS (4)
  1. CITALOPRAM HYDROBROMIDE [Concomitant]
     Indication: DEPRESSION
  2. CONTRACEPTIVES NOS [Concomitant]
     Indication: ORAL CONTRACEPTION
     Route: 048
  3. CLOTRIMAZOLE [Suspect]
     Indication: VULVOVAGINAL MYCOTIC INFECTION
     Dosage: DOSE:  1 VAGINA TABLET
     Route: 067
     Dates: start: 20120101, end: 20120101
  4. CYMBALTA [Concomitant]
     Indication: DEPRESSION

REACTIONS (1)
  - VAGINAL HAEMORRHAGE [None]
